FAERS Safety Report 16852780 (Version 1)
Quarter: 2019Q3

REPORT INFORMATION
  Report Type: Report from Study
  Country: ES (occurrence: ES)
  Receive Date: 20190925
  Receipt Date: 20190925
  Transmission Date: 20191005
  Serious: Yes (Hospitalization)
  Sender: FDA-Public Use
  Company Number: ES-MYLANLABS-2019M1088924

PATIENT
  Age: 58 Year
  Sex: Male

DRUGS (6)
  1. BISOPROLOL [Concomitant]
     Active Substance: BISOPROLOL
     Indication: HYPERTENSION
     Dosage: 5 MILLIGRAM, QD
     Route: 048
     Dates: start: 20181123
  2. TACROLIMUS. [Interacting]
     Active Substance: TACROLIMUS
     Indication: RENAL TRANSPLANT
     Dosage: 6 MILLIGRAM, QD
     Route: 048
     Dates: start: 20181119, end: 20190124
  3. PREDNISONA [Interacting]
     Active Substance: PREDNISONE
     Indication: RENAL TRANSPLANT
     Dosage: 5 MILLIGRAM, QD
     Route: 048
     Dates: start: 20181127
  4. ADIRO [Concomitant]
     Active Substance: ASPIRIN
     Indication: PROPHYLAXIS
     Dosage: 100 MILLIGRAM, QD
     Route: 048
     Dates: start: 201210
  5. MYCOPHENOLATE MOFETIL. [Suspect]
     Active Substance: MYCOPHENOLATE MOFETIL
     Indication: RENAL TRANSPLANT
     Dosage: 1 GRAM, QD
     Route: 048
     Dates: start: 20181118
  6. SEPTRIN [Concomitant]
     Active Substance: SULFAMETHOXAZOLE\TRIMETHOPRIM
     Indication: RENAL TRANSPLANT
     Dosage: 320 MILLIGRAM, QD
     Route: 048
     Dates: start: 20181127

REACTIONS (2)
  - Cytomegalovirus infection [Recovered/Resolved]
  - Drug interaction [Unknown]

NARRATIVE: CASE EVENT DATE: 20190123
